FAERS Safety Report 9897625 (Version 2)
Quarter: 2014Q1

REPORT INFORMATION
  Report Type: Spontaneous
  Country: US (occurrence: US)
  Receive Date: 20140214
  Receipt Date: 20140214
  Transmission Date: 20141002
  Serious: No
  Sender: FDA-Public Use
  Company Number: US-DRREDDYS-USA/USA/13/0028313

PATIENT
  Age: 55 Year
  Sex: Female

DRUGS (1)
  1. SIMVASTATIN 20 MG [Suspect]
     Indication: HYPERLIPIDAEMIA
     Dosage: 20 MG DAILY
     Route: 048
     Dates: start: 201007

REACTIONS (3)
  - Nausea [Unknown]
  - Headache [Unknown]
  - Myalgia [Unknown]
